FAERS Safety Report 15183079 (Version 1)
Quarter: 2018Q3

REPORT INFORMATION
  Report Type: Spontaneous
  Country: FR (occurrence: FR)
  Receive Date: 20180723
  Receipt Date: 20180723
  Transmission Date: 20181010
  Serious: Yes (Disabling, Other)
  Sender: FDA-Public Use
  Company Number: FR-SA-2018SA116634

PATIENT
  Age: 42 Year
  Sex: Female
  Weight: 48 kg

DRUGS (1)
  1. AUBAGIO [Suspect]
     Active Substance: TERIFLUNOMIDE
     Indication: MULTIPLE SCLEROSIS
     Dosage: 14 MG, QD
     Route: 048
     Dates: start: 20160829, end: 20180419

REACTIONS (12)
  - Diarrhoea [Unknown]
  - Alopecia [Recovered/Resolved]
  - Hypertension [Recovering/Resolving]
  - Erythema multiforme [Unknown]
  - Rash [Unknown]
  - Decreased appetite [Unknown]
  - Feeling hot [Unknown]
  - Oedema [Unknown]
  - Asthenia [Unknown]
  - Pruritus [Unknown]
  - Pain [Unknown]
  - Weight decreased [Unknown]

NARRATIVE: CASE EVENT DATE: 201608
